FAERS Safety Report 17669837 (Version 1)
Quarter: 2020Q2

REPORT INFORMATION
  Report Type: Spontaneous
  Country: PE (occurrence: PE)
  Receive Date: 20200415
  Receipt Date: 20200415
  Transmission Date: 20200713
  Serious: Yes (Death)
  Sender: FDA-Public Use
  Company Number: PE-PFIZER INC-2020154409

PATIENT
  Sex: Male

DRUGS (4)
  1. IBRANCE [Suspect]
     Active Substance: PALBOCICLIB
     Indication: BREAST CANCER
  2. IBRANCE [Suspect]
     Active Substance: PALBOCICLIB
     Indication: PROSTATE CANCER
  3. DENOSUMAB [Concomitant]
     Active Substance: DENOSUMAB
  4. FULVESTRANT. [Concomitant]
     Active Substance: FULVESTRANT

REACTIONS (3)
  - Death [Fatal]
  - Off label use [Unknown]
  - Product use issue [Unknown]
